FAERS Safety Report 6194807-0 (Version None)
Quarter: 2009Q2

REPORT INFORMATION
  Report Type: 
  Country: None (occurrence: None)
  Receive Date: 20090519
  Receipt Date: 20090511
  Transmission Date: 20091009
  Serious: Yes (Life-Threatening)
  Sender: FDA-Public Use
  Company Number: US-WYE-H08099209

PATIENT
  Age: 53 Year
  Sex: Male
  Weight: 86.26 kg

DRUGS (2)
  1. PRISTIQ [Suspect]
     Indication: MAJOR DEPRESSION
     Route: 048
     Dates: start: 20081119, end: 20081129
  2. WELLBUTRIN XL [Concomitant]
     Dates: start: 20070601

REACTIONS (5)
  - CONVULSION [None]
  - INTENTIONAL DRUG MISUSE [None]
  - NIGHTMARE [None]
  - SOMNOLENCE [None]
  - UNRESPONSIVE TO STIMULI [None]
